FAERS Safety Report 5432977-X (Version None)
Quarter: 2007Q3

REPORT INFORMATION
  Report Type: 
  Country: None (occurrence: None)
  Receive Date: 20070831
  Receipt Date: 20070823
  Transmission Date: 20080115
  Serious: Yes (Other)
  Sender: FDA-Public Use
  Company Number: PHEH2007US11056

PATIENT
  Age: 42 Year
  Sex: Female
  Weight: 100.68 kg

DRUGS (3)
  1. TEKTURNA [Suspect]
     Indication: HYPERTENSION
     Dosage: 150 MG, QD
     Route: 048
     Dates: start: 20070614, end: 20070712
  2. LOTREL [Concomitant]
     Indication: HYPERTENSION
     Dosage: 5MG AML/20 MG BEN, UNK
     Route: 048
     Dates: start: 20070213
  3. BISOPROLOL [Concomitant]
     Dosage: 5 MG, QD
     Route: 048
     Dates: start: 20070201

REACTIONS (2)
  - BLOOD PRESSURE INCREASED [None]
  - OEDEMA PERIPHERAL [None]
